FAERS Safety Report 25244073 (Version 1)
Quarter: 2025Q2

REPORT INFORMATION
  Report Type: Spontaneous
  Country: TW (occurrence: TW)
  Receive Date: 20250428
  Receipt Date: 20250428
  Transmission Date: 20250716
  Serious: Yes (Hospitalization)
  Sender: DAIICHI
  Company Number: TW-DSJP-DS-2025-137840-TW

PATIENT
  Age: 75 Year
  Sex: Male
  Weight: 68.3 kg

DRUGS (8)
  1. EDOXABAN [Suspect]
     Active Substance: EDOXABAN
     Indication: Cerebrovascular accident
     Dosage: 60 MG, QD
     Route: 048
     Dates: start: 20230406, end: 20230407
  2. LASIX [Suspect]
     Active Substance: FUROSEMIDE
     Indication: Product used for unknown indication
     Dosage: 20 MG, QD
     Route: 042
     Dates: start: 20230406, end: 20230408
  3. LASIX [Suspect]
     Active Substance: FUROSEMIDE
     Dosage: 20 MG, BID
     Route: 042
     Dates: start: 20230409, end: 20230415
  4. CEFOPERAZONE SODIUM\SULBACTAM SODIUM [Concomitant]
     Active Substance: CEFOPERAZONE SODIUM\SULBACTAM SODIUM
     Indication: Product used for unknown indication
     Dosage: 2 DOSAGE FORM (VIAL), ONCE EVERY 12HR
     Route: 042
     Dates: start: 20230410, end: 20230418
  5. LOMEANE [Concomitant]
     Indication: Product used for unknown indication
     Dosage: UNK, TID
     Route: 061
     Dates: start: 20230407, end: 20230410
  6. UREA [Concomitant]
     Active Substance: UREA
     Indication: Product used for unknown indication
     Dosage: UNK UNK, TID
     Route: 065
     Dates: start: 20230407, end: 20230410
  7. NEOMYCIN [Concomitant]
     Active Substance: NEOMYCIN
     Indication: Product used for unknown indication
     Dosage: UNK, TID
     Route: 061
     Dates: start: 20230407, end: 20230410
  8. U-VANCO [Concomitant]
     Indication: Product used for unknown indication
     Dosage: UNK UNK, QD
     Route: 042
     Dates: start: 20230413, end: 20230501

REACTIONS (10)
  - Erythema [Recovered/Resolved]
  - Skin wound [Recovered/Resolved]
  - Skin exfoliation [Recovered/Resolved]
  - Oliguria [Recovered/Resolved]
  - Muscular weakness [Recovered/Resolved]
  - Chest discomfort [Recovered/Resolved]
  - Abdominal distension [Recovered/Resolved]
  - Vomiting [Recovered/Resolved]
  - Hyponatraemia [Recovered/Resolved]
  - Oedema peripheral [Unknown]

NARRATIVE: CASE EVENT DATE: 20230401
